FAERS Safety Report 8799685 (Version 1)
Quarter: 2012Q4

REPORT INFORMATION
  Report Type: Spontaneous
  Country: US (occurrence: None)
  Receive Date: 20120918
  Receipt Date: 20120918
  Transmission Date: 20130627
  Serious: No
  Sender: FDA-Public Use
  Company Number: None

PATIENT
  Age: 84 Year
  Weight: 82 kg

DRUGS (2)
  1. ASPIRIN [Suspect]
     Indication: VASCULAR OPERATION
     Route: 048
     Dates: start: 20110606, end: 20120904
  2. ASPIRIN [Suspect]
     Indication: CAROTID ENDARTERECTOMY
     Route: 048
     Dates: start: 20110606, end: 20120904

REACTIONS (4)
  - Haemorrhage [None]
  - Anaemia [None]
  - Gastrointestinal ulcer [None]
  - Alcohol use [None]
